FAERS Safety Report 7244898-0 (Version None)
Quarter: 2011Q1

REPORT INFORMATION
  Report Type: 
  Country: None (occurrence: None)
  Receive Date: 20110126
  Receipt Date: 20110118
  Transmission Date: 20110831
  Serious: No
  Sender: FDA-Public Use
  Company Number: DE-JNJFOC-20110102108

PATIENT
  Sex: Male
  Weight: 86 kg

DRUGS (3)
  1. REMICADE [Suspect]
     Indication: CROHN'S DISEASE
     Route: 042
  2. REMICADE [Suspect]
     Dosage: TOTAL 6 INFUSIONS
     Route: 042
  3. CORTISONE [Concomitant]
     Indication: CROHN'S DISEASE
     Dosage: PULSE THERAPY

REACTIONS (3)
  - LIP SWELLING [None]
  - PARAESTHESIA [None]
  - INFUSION RELATED REACTION [None]
